FAERS Safety Report 16178129 (Version 2)
Quarter: 2019Q2

REPORT INFORMATION
  Report Type: Spontaneous
  Country: US (occurrence: US)
  Receive Date: 20190410
  Receipt Date: 20190506
  Transmission Date: 20190711
  Serious: No
  Sender: FDA-Public Use
  Company Number: US-GLAXOSMITHKLINE-US2019061948

PATIENT
  Age: 52 Year
  Sex: Male

DRUGS (1)
  1. DICLOFENAC SODIUM GEL [Suspect]
     Active Substance: DICLOFENAC SODIUM
     Indication: ARTHRITIS
     Dosage: 1 UNK, BID
     Route: 061
     Dates: start: 20190401, end: 20190402

REACTIONS (6)
  - Muscle spasms [Recovering/Resolving]
  - Product administered at inappropriate site [Unknown]
  - Chest discomfort [Recovering/Resolving]
  - Overdose [Unknown]
  - Palpitations [Recovering/Resolving]
  - Product complaint [Unknown]

NARRATIVE: CASE EVENT DATE: 20190401
